FAERS Safety Report 8963653 (Version 2)
Quarter: 2013Q2

REPORT INFORMATION
  Report Type: Spontaneous
  Country: US (occurrence: US)
  Receive Date: 20121214
  Receipt Date: 20130528
  Transmission Date: 20140414
  Serious: Yes (Hospitalization, Disabling, Other)
  Sender: FDA-Public Use
  Company Number: US-BAYER-2012-129764

PATIENT
  Age: 17 Year
  Sex: Female
  Weight: 58.96 kg

DRUGS (11)
  1. YASMIN [Suspect]
     Indication: CONTRACEPTION
     Dosage: UNK
     Dates: start: 200412, end: 2006
  2. TAMIFLU [Concomitant]
  3. AZITHROMYCIN [Concomitant]
  4. PREDNISONE [Concomitant]
  5. ADVIL [Concomitant]
  6. LEXAPRO [Concomitant]
  7. AUGMENTIN [Concomitant]
  8. ZYRTEC [Concomitant]
  9. MAXAIR [Concomitant]
  10. PULMICORT [Concomitant]
  11. ALBUTEROL [Concomitant]

REACTIONS (10)
  - Cholecystitis acute [None]
  - Biliary dyskinesia [None]
  - Bipolar disorder [Not Recovered/Not Resolved]
  - Deformity [None]
  - Anxiety [Not Recovered/Not Resolved]
  - Injury [None]
  - Anhedonia [Not Recovered/Not Resolved]
  - Abdominal pain [None]
  - Nausea [None]
  - Life expectancy shortened [None]
